FAERS Safety Report 5311490-4 (Version None)
Quarter: 2007Q2

REPORT INFORMATION
  Report Type: 
  Country: None (occurrence: None)
  Receive Date: 20070426
  Receipt Date: 20070426
  Transmission Date: 20071010
  Serious: Yes (Other)
  Sender: FDA-Public Use
  Company Number: None

PATIENT
  Age: 48 Year
  Sex: Male
  Weight: 59.8748 kg

DRUGS (11)
  1. AMPHOTERICIN B LIPID COMPLEX/ENZON PHARMACEUTICALS [Suspect]
     Indication: FUNGAL INFECTION
     Dosage: 300 MG IV ONCE
     Route: 042
     Dates: start: 20061102
  2. CEFEPINE [Concomitant]
  3. MEPERIDINE HCL [Concomitant]
  4. APAP TAB [Concomitant]
  5. M.V.I. [Concomitant]
  6. IPRATROPIUM INHALER [Concomitant]
  7. LEVALBUTEROL HCL [Concomitant]
  8. HEPARIN [Concomitant]
  9. TOBRAMYCIN [Concomitant]
  10. CA GLUCONATE [Concomitant]
  11. POTASSIUM CHLORIDE [Concomitant]

REACTIONS (7)
  - BLOOD PRESSURE INCREASED [None]
  - HEART RATE INCREASED [None]
  - INFUSION RELATED REACTION [None]
  - JUGULAR VEIN DISTENSION [None]
  - OXYGEN SATURATION DECREASED [None]
  - RESPIRATORY DISTRESS [None]
  - RESPIRATORY RATE INCREASED [None]
